FAERS Safety Report 17201718 (Version 1)
Quarter: 2019Q4

REPORT INFORMATION
  Report Type: Spontaneous
  Country: US (occurrence: US)
  Receive Date: 20191226
  Receipt Date: 20191226
  Transmission Date: 20200122
  Serious: Yes (Other)
  Sender: FDA-Public Use
  Company Number: US-MYLANLABS-2019M1124880

PATIENT
  Sex: Female
  Weight: 50 kg

DRUGS (2)
  1. METHIMAZOLE TABLETS, USP [Suspect]
     Active Substance: METHIMAZOLE
     Indication: BASEDOW^S DISEASE
     Dosage: 2.5 MILLIGRAM, 3XW
     Route: 065
     Dates: start: 2015
  2. ALENDRONATE [Concomitant]
     Active Substance: ALENDRONATE SODIUM
     Indication: OSTEOPOROSIS

REACTIONS (4)
  - Mouth ulceration [Not Recovered/Not Resolved]
  - Product quality issue [Unknown]
  - Product dispensing error [Unknown]
  - Coeliac disease [Not Recovered/Not Resolved]
